FAERS Safety Report 5302856-7 (Version None)
Quarter: 2007Q2

REPORT INFORMATION
  Report Type: 
  Country: None (occurrence: None)
  Receive Date: 20070419
  Receipt Date: 20070419
  Transmission Date: 20071010
  Serious: Yes (Other)
  Sender: FDA-Public Use
  Company Number: None

PATIENT
  Age: 59 Year
  Sex: Female
  Weight: 90.7194 kg

DRUGS (2)
  1. BYETTA [Suspect]
     Indication: DIABETES MELLITUS
     Dosage: 5MCG BID 057
     Dates: start: 20070403, end: 20070414
  2. BYETTA [Suspect]
     Indication: OBESITY
     Dosage: 5MCG BID 057
     Dates: start: 20070403, end: 20070414

REACTIONS (3)
  - INJECTION SITE IRRITATION [None]
  - INJECTION SITE PRURITUS [None]
  - INJECTION SITE URTICARIA [None]
